FAERS Safety Report 15135339 (Version 1)
Quarter: 2018Q3

REPORT INFORMATION
  Report Type: Spontaneous
  Country: RO (occurrence: RO)
  Receive Date: 20180712
  Receipt Date: 20180712
  Transmission Date: 20181010
  Serious: Yes (Hospitalization, Other)
  Sender: FDA-Public Use
  Company Number: RO-MYLANLABS-2018M1051884

PATIENT
  Age: 60 Year
  Sex: Male

DRUGS (9)
  1. VITAMIN B12 [Concomitant]
     Active Substance: CYANOCOBALAMIN
     Indication: MALABSORPTION
     Dosage: UNK
     Route: 065
  2. FENITOINA                          /00017401/ [Concomitant]
     Active Substance: PHENYTOIN
     Indication: EPILEPSY
     Dosage: UNK
     Route: 065
  3. VITAMIN B12 [Concomitant]
     Active Substance: CYANOCOBALAMIN
     Indication: DIARRHOEA
  4. METRONIDAZOLE. [Suspect]
     Active Substance: METRONIDAZOLE
     Indication: CLOSTRIDIUM DIFFICILE INFECTION
     Dosage: 500 MG, 3X/DAY
     Route: 065
  5. VANCOMYCIN [Suspect]
     Active Substance: VANCOMYCIN
     Indication: CLOSTRIDIUM DIFFICILE INFECTION
     Dosage: IN PROGRESSIVE DOSAGE, UP TO 500 MG X 4 TIMES DAILY
     Route: 065
  6. VANCOMYCIN [Suspect]
     Active Substance: VANCOMYCIN
     Dosage: 125 MG, 4X/DAY IN PROGRESSIVE DOSES UNTIL 500 MG 4X/DAY
     Route: 065
  7. FERRUM                             /00023501/ [Concomitant]
     Indication: DIARRHOEA
  8. FERRUM                             /00023501/ [Concomitant]
     Indication: MALABSORPTION
     Dosage: UNK
     Route: 065
  9. CARBAMAZEPINE. [Concomitant]
     Active Substance: CARBAMAZEPINE
     Indication: EPILEPSY
     Dosage: UNK
     Route: 065

REACTIONS (2)
  - Drug ineffective [Recovered/Resolved]
  - Drug resistance [Recovered/Resolved with Sequelae]
